FAERS Safety Report 5954214-X (Version None)
Quarter: 2008Q4

REPORT INFORMATION
  Report Type: 
  Country: None (occurrence: None)
  Receive Date: 20081113
  Receipt Date: 20081113
  Transmission Date: 20090506
  Serious: No
  Sender: FDA-Public Use
  Company Number: None

PATIENT
  Age: 71 Year
  Sex: Female

DRUGS (1)
  1. PLAVIX [Suspect]
     Indication: PROPHYLAXIS
     Dosage: 75MG 1TAB DAILY ORAL
     Route: 048
     Dates: start: 20080508, end: 20081018

REACTIONS (8)
  - ABNORMAL BEHAVIOUR [None]
  - ARTHRALGIA [None]
  - BACK PAIN [None]
  - FAECES DISCOLOURED [None]
  - FATIGUE [None]
  - FEELING ABNORMAL [None]
  - HEADACHE [None]
  - SCREAMING [None]
